FAERS Safety Report 8180050-2 (Version None)
Quarter: 2012Q1

REPORT INFORMATION
  Report Type: 
  Country: None (occurrence: None)
  Receive Date: 20120302
  Receipt Date: 20120302
  Transmission Date: 20120608
  Serious: Yes (Hospitalization, Other)
  Sender: FDA-Public Use
  Company Number: None

PATIENT
  Age: 50 Year
  Sex: Male
  Weight: 90.718 kg

DRUGS (1)
  1. SIMAVASTATIN [Suspect]
     Indication: BLOOD CHOLESTEROL INCREASED
     Dosage: 20.0 MG
     Route: 048
     Dates: start: 20080115, end: 20110216

REACTIONS (6)
  - MUSCULAR WEAKNESS [None]
  - MUSCLE ATROPHY [None]
  - CONFUSIONAL STATE [None]
  - DISTURBANCE IN ATTENTION [None]
  - GAIT DISTURBANCE [None]
  - MYOPATHY [None]
